FAERS Safety Report 6183901-6 (Version None)
Quarter: 2009Q2

REPORT INFORMATION
  Report Type: 
  Country: None (occurrence: None)
  Receive Date: 20090508
  Receipt Date: 20090504
  Transmission Date: 20091009
  Serious: Yes (Other)
  Sender: FDA-Public Use
  Company Number: IT-ROCHE-631060

PATIENT
  Age: 38 Year
  Sex: Female

DRUGS (10)
  1. CAPECITABINE [Suspect]
     Route: 065
  2. TRASTUZUMAB [Suspect]
     Dosage: ROUTE: INTRAVENOUS
     Route: 065
     Dates: start: 19990101
  3. TRASTUZUMAB [Suspect]
     Dosage: ROUTE: INTRAVENOUS
     Route: 065
  4. TRASTUZUMAB [Suspect]
     Dosage: TRASTUZUMAB (ROUTE: INTRATHECAL, FORM: INJECTION) COMBINED WITH INTRAVENOUS TRASTUZUMAB
     Route: 065
     Dates: start: 20050601
  5. PACLITAXEL [Suspect]
     Route: 065
  6. PACLITAXEL [Suspect]
     Route: 065
     Dates: start: 19910101
  7. DOXORUBICIN HCL [Suspect]
     Route: 065
  8. TEMOZOLOMIDE [Suspect]
     Dosage: DRUG REPORTED AS TEMOZOLAMIDE
     Route: 065
  9. TEMOZOLOMIDE [Suspect]
     Route: 065
  10. CISPLATIN [Suspect]
     Route: 065

REACTIONS (7)
  - APRAXIA [None]
  - CENTRAL NERVOUS SYSTEM LESION [None]
  - CEREBRAL ATROPHY [None]
  - DEMENTIA [None]
  - DIZZINESS [None]
  - HEADACHE [None]
  - METASTASES TO CENTRAL NERVOUS SYSTEM [None]
